FAERS Safety Report 11997423 (Version 2)
Quarter: 2016Q1

REPORT INFORMATION
  Report Type: Report from Study
  Country: US (occurrence: US)
  Receive Date: 20160203
  Receipt Date: 20160209
  Transmission Date: 20160526
  Serious: Yes (Hospitalization, Other)
  Sender: FDA-Public Use
  Company Number: US-AMGEN-USACT2016010255

PATIENT
  Age: 33 Year
  Sex: Male
  Weight: 104.4 kg

DRUGS (9)
  1. BELINOSTAT [Concomitant]
     Active Substance: BELINOSTAT
     Indication: NON-HODGKIN^S LYMPHOMA
     Dosage: 600 MG/M2, PER CHEMO REGIM
     Route: 065
     Dates: start: 20151116, end: 20151218
  2. PRILOSEC [Concomitant]
     Active Substance: OMEPRAZOLE MAGNESIUM
     Dosage: UNK
  3. CARFILZOMIB [Suspect]
     Active Substance: CARFILZOMIB
     Indication: NON-HODGKIN^S LYMPHOMA
     Dosage: 36 MG/M2, PER CHEMO REGIM
     Route: 065
     Dates: start: 20151116, end: 20151229
  4. BACTRIM [Concomitant]
     Active Substance: SULFAMETHOXAZOLE\TRIMETHOPRIM
     Dosage: UNK
  5. ALEMTUZUMAB [Concomitant]
     Active Substance: ALEMTUZUMAB
     Dosage: UNK
     Dates: start: 20160111
  6. ACYCLOVIR                          /00587301/ [Concomitant]
     Active Substance: ACYCLOVIR
     Dosage: UNK
  7. LIDOCAINE. [Concomitant]
     Active Substance: LIDOCAINE
     Dosage: UNK
  8. LEXAPRO [Concomitant]
     Active Substance: ESCITALOPRAM OXALATE
     Dosage: UNK
  9. ONDANSETRON [Concomitant]
     Active Substance: ONDANSETRON
     Dosage: UNK

REACTIONS (4)
  - Liver function test increased [Not Recovered/Not Resolved]
  - Clostridium difficile colitis [Unknown]
  - Dyspnoea [Unknown]
  - Pyrexia [Unknown]

NARRATIVE: CASE EVENT DATE: 20160125
